FAERS Safety Report 6262380-4 (Version None)
Quarter: 2009Q3

REPORT INFORMATION
  Report Type: 
  Country: None (occurrence: None)
  Receive Date: 20090709
  Receipt Date: 20090630
  Transmission Date: 20100115
  Serious: Yes (Other)
  Sender: FDA-Public Use
  Company Number: CA-JNJFOC-20090609800

PATIENT
  Sex: Male

DRUGS (1)
  1. EXTRA STRENGTH TYLENOL COLD DAYTIME [Suspect]
     Indication: NASOPHARYNGITIS
     Route: 048

REACTIONS (3)
  - DYSPNOEA [None]
  - FOREIGN BODY TRAUMA [None]
  - VOMITING [None]
